FAERS Safety Report 5234135-0 (Version None)
Quarter: 2007Q1

REPORT INFORMATION
  Report Type: 
  Country: None (occurrence: None)
  Receive Date: 20070208
  Receipt Date: 20070206
  Transmission Date: 20070707
  Serious: Yes (Hospitalization)
  Sender: FDA-Public Use
  Company Number: US-MERCK-0612USA01099

PATIENT
  Age: 87 Year
  Sex: Female

DRUGS (3)
  1. JANUVIA [Suspect]
     Indication: DIABETES MELLITUS NON-INSULIN-DEPENDENT
     Route: 048
     Dates: start: 20060101, end: 20061201
  2. LASIX [Concomitant]
     Route: 065
  3. CARDIZEM [Concomitant]
     Route: 065

REACTIONS (1)
  - HYPONATRAEMIA [None]
